FAERS Safety Report 20407577 (Version 1)
Quarter: 2022Q1

REPORT INFORMATION
  Report Type: Spontaneous
  Country: US (occurrence: US)
  Receive Date: 20220131
  Receipt Date: 20220131
  Transmission Date: 20220423
  Serious: No
  Sender: FDA-Public Use
  Company Number: US-BIOMARINAP-US-2022-140947

PATIENT
  Age: 4 Year
  Sex: Female
  Weight: 15.8 kg

DRUGS (1)
  1. VIMIZIM [Suspect]
     Active Substance: ELOSULFASE ALFA
     Indication: Product used for unknown indication
     Dosage: 7,UNK, QW
     Route: 065
     Dates: start: 201808

REACTIONS (1)
  - Pyrexia [Unknown]
